FAERS Safety Report 7336097-9 (Version None)
Quarter: 2011Q1

REPORT INFORMATION
  Report Type: 
  Country: None (occurrence: None)
  Receive Date: 20110307
  Receipt Date: 20110301
  Transmission Date: 20110831
  Serious: Yes (Death)
  Sender: FDA-Public Use
  Company Number: JP-ASTRAZENECA-2011SE11144

PATIENT
  Age: 71 Year
  Sex: Male

DRUGS (8)
  1. FLIVAS OD [Concomitant]
     Dosage: DOSE UNKNOWN
     Route: 048
     Dates: start: 20100819, end: 20100828
  2. DEPROMEL [Concomitant]
     Dosage: DOSE UNKNOWN
     Route: 048
  3. NELUROLEN [Concomitant]
     Dosage: DOSE UNKNOWN
     Route: 048
  4. RILMAZAFONE HYDROCHLORIDE HYDRATE [Concomitant]
     Dosage: DOSE UNKNOWN
     Route: 048
  5. DAIO-KANZO-TO [Concomitant]
     Dosage: DOSE UNKNOWN
     Route: 048
  6. CASODEX [Suspect]
     Indication: PROSTATE CANCER
     Route: 048
     Dates: start: 20090401, end: 20100722
  7. LEUPLIN [Suspect]
     Indication: PROSTATE CANCER
     Dosage: 3.75 MG ADMINISTERED 13 TIMES
     Route: 058
     Dates: start: 20090813, end: 20100801
  8. DOPAREEL [Concomitant]
     Dosage: DOSE UNKNOWN
     Route: 048

REACTIONS (1)
  - DIFFUSE ALVEOLAR DAMAGE [None]
